FAERS Safety Report 4437710-6 (Version None)
Quarter: 2004Q3

REPORT INFORMATION
  Report Type: 
  Country: None (occurrence: None)
  Receive Date: 20040831
  Receipt Date: 20031208
  Transmission Date: 20050211
  Serious: No
  Sender: FDA-Public Use
  Company Number: US-GLAXOSMITHKLINE-A0442326A

PATIENT
  Age: 16 Year
  Sex: Female

DRUGS (1)
  1. ZOVIRAX [Suspect]
     Dosage: 400MG TWICE PER DAY
     Route: 048

REACTIONS (2)
  - AGITATION [None]
  - SOMNOLENCE [None]
